FAERS Safety Report 7957604-9 (Version None)
Quarter: 2011Q4

REPORT INFORMATION
  Report Type: 
  Country: None (occurrence: None)
  Receive Date: 20111205
  Receipt Date: 20111124
  Transmission Date: 20120403
  Serious: Yes (Life-Threatening, Other)
  Sender: FDA-Public Use
  Company Number: JP-NOVOPROD-340245

PATIENT

DRUGS (2)
  1. LIRAGLUTIDE FLEXPEN [Suspect]
     Dosage: 0.3 MG, QD
     Route: 058
     Dates: start: 20111122, end: 20111124
  2. LIRAGLUTIDE FLEXPEN [Suspect]
     Indication: TYPE 2 DIABETES MELLITUS
     Dosage: 0.3 MG, QD
     Route: 058
     Dates: start: 20111103

REACTIONS (4)
  - PRURITUS [None]
  - ERYTHEMA [None]
  - ANAPHYLACTIC SHOCK [None]
  - SWELLING FACE [None]
